FAERS Safety Report 5217292-1 (Version None)
Quarter: 2007Q1

REPORT INFORMATION
  Report Type: 
  Country: None (occurrence: None)
  Receive Date: 20070124
  Receipt Date: 20051221
  Transmission Date: 20070707
  Serious: No
  Sender: FDA-Public Use
  Company Number: US-GLAXOSMITHKLINE-A0586635A

PATIENT
  Age: 68 Year
  Sex: Female

DRUGS (6)
  1. PAXIL CR [Suspect]
     Indication: DEPRESSION
     Dosage: 12.5MG TWICE PER DAY
     Route: 048
     Dates: start: 20051122
  2. AVALIDE [Concomitant]
  3. TENORMIN [Concomitant]
  4. ZETIA [Concomitant]
  5. ZOCOR [Concomitant]
  6. PAXIL [Concomitant]
     Dosage: 40MG UNKNOWN
     Route: 048

REACTIONS (1)
  - DRUG INEFFECTIVE [None]
